FAERS Safety Report 20891126 (Version 2)
Quarter: 2022Q3

REPORT INFORMATION
  Report Type: Spontaneous
  Country: JP (occurrence: JP)
  Receive Date: 20220530
  Receipt Date: 20220705
  Transmission Date: 20221027
  Serious: Yes (Hospitalization, Other)
  Sender: FDA-Public Use
  Company Number: JP-GLAXOSMITHKLINE-JP2022JPN082983

PATIENT

DRUGS (2)
  1. SUMATRIPTAN SUCCINATE [Suspect]
     Active Substance: SUMATRIPTAN SUCCINATE
     Indication: Migraine
     Route: 048
  2. SUMATRIPTAN SUCCINATE [Suspect]
     Active Substance: SUMATRIPTAN SUCCINATE
     Indication: Headache

REACTIONS (5)
  - Subarachnoid haemorrhage [Recovering/Resolving]
  - Reversible cerebral vasoconstriction syndrome [Recovering/Resolving]
  - Headache [Unknown]
  - Drug ineffective for unapproved indication [Unknown]
  - Maternal exposure during breast feeding [Unknown]
